FAERS Safety Report 8270995-7 (Version None)
Quarter: 2012Q2

REPORT INFORMATION
  Report Type: 
  Country: None (occurrence: None)
  Receive Date: 20120410
  Receipt Date: 20120403
  Transmission Date: 20120825
  Serious: Yes (Other)
  Sender: FDA-Public Use
  Company Number: US-AMGEN-USASP2011019823

PATIENT
  Age: 50 Year
  Sex: Female
  Weight: 70.748 kg

DRUGS (7)
  1. ENBREL [Suspect]
     Indication: PSORIATIC ARTHROPATHY
     Dosage: 50 MG, QWK
     Dates: start: 20060101
  2. ENBREL [Suspect]
     Indication: RHEUMATOID ARTHRITIS
     Dosage: 50 MG, QWK
     Route: 058
     Dates: start: 20050801
  3. ZADITOR                            /00495201/ [Concomitant]
     Dosage: UNK
  4. ALBUTEROL [Concomitant]
     Dosage: 90 MG, PRN
     Route: 048
  5. NASACORT [Concomitant]
     Dosage: 55 MG, BID
  6. FEXOFENADINE [Concomitant]
     Indication: HYPERSENSITIVITY
     Dosage: 180 MG, QD
     Route: 048
  7. SINGULAIR [Concomitant]
     Dosage: 10 MG, QD
     Route: 048

REACTIONS (10)
  - ANGER [None]
  - INFLUENZA [None]
  - INJECTION SITE ERYTHEMA [None]
  - INJECTION SITE PAIN [None]
  - INJECTION SITE WARMTH [None]
  - PHARYNGITIS STREPTOCOCCAL [None]
  - INJECTION SITE SWELLING [None]
  - DEPRESSION [None]
  - NASOPHARYNGITIS [None]
  - INJECTION SITE REACTION [None]
